FAERS Safety Report 4419234-5 (Version None)
Quarter: 2004Q3

REPORT INFORMATION
  Report Type: 
  Country: None (occurrence: None)
  Receive Date: 20040809
  Receipt Date: 20040121
  Transmission Date: 20050211
  Serious: No
  Sender: FDA-Public Use
  Company Number: US-GLAXOSMITHKLINE-A0494480A

PATIENT
  Age: 63 Year
  Sex: Female

DRUGS (10)
  1. PAXIL [Suspect]
     Indication: DEPRESSION
     Dosage: 30MG PER DAY
     Route: 048
     Dates: start: 20040101
  2. VERAPAMIL [Concomitant]
  3. HYDROCHLOROTHIAZIDE [Concomitant]
  4. ATACAND [Concomitant]
  5. BEXTRA [Concomitant]
  6. EVISTA [Concomitant]
  7. VITAMIN CAP [Concomitant]
  8. MIDRIN [Concomitant]
  9. FIORICET [Concomitant]
  10. TRAMADOL HCL [Concomitant]

REACTIONS (1)
  - PRURITUS [None]
